FAERS Safety Report 7042738-6 (Version None)
Quarter: 2010Q4

REPORT INFORMATION
  Report Type: 
  Country: None (occurrence: None)
  Receive Date: 20101013
  Receipt Date: 20100108
  Transmission Date: 20110411
  Serious: No
  Sender: FDA-Public Use
  Company Number: US-ASTRAZENECA-2010SE00139

PATIENT
  Age: 75 Year
  Sex: Female
  Weight: 69.9 kg

DRUGS (6)
  1. SYMBICORT [Suspect]
     Indication: EMPHYSEMA
     Dosage: 160 MCG BID
     Route: 055
  2. SEROQUEL [Concomitant]
     Indication: ATTENTION DEFICIT/HYPERACTIVITY DISORDER
  3. PROVENTIL [Concomitant]
  4. SPIRIVA [Concomitant]
  5. PREDNISONE [Concomitant]
  6. O2 [Concomitant]

REACTIONS (3)
  - BURNING SENSATION [None]
  - DYSPHONIA [None]
  - NASAL CONGESTION [None]
